FAERS Safety Report 21050435 (Version 1)
Quarter: 2022Q3

REPORT INFORMATION
  Report Type: Report from Study
  Country: NL (occurrence: NL)
  Receive Date: 20220707
  Receipt Date: 20220707
  Transmission Date: 20221027
  Serious: Yes (Other)
  Sender: FDA-Public Use
  Company Number: NL-SUN PHARMACEUTICAL INDUSTRIES LTD-2022R1-343521

PATIENT
  Age: 37 Year
  Sex: Male

DRUGS (4)
  1. MIRTAZAPINE [Suspect]
     Active Substance: MIRTAZAPINE
     Indication: Progressive multifocal leukoencephalopathy
     Dosage: 60 MILLIGRAM, DAILY
     Route: 065
  2. MIRTAZAPINE [Suspect]
     Active Substance: MIRTAZAPINE
     Indication: Immune reconstitution inflammatory syndrome
  3. MEFLOQUINE [Suspect]
     Active Substance: MEFLOQUINE
     Indication: Progressive multifocal leukoencephalopathy
     Dosage: 250 MILLIGRAM, WEEKLY
     Route: 065
  4. MEFLOQUINE [Suspect]
     Active Substance: MEFLOQUINE
     Indication: Immune reconstitution inflammatory syndrome

REACTIONS (1)
  - Disease progression [Unknown]
